FAERS Safety Report 7470425-9 (Version None)
Quarter: 2011Q2

REPORT INFORMATION
  Report Type: 
  Country: None (occurrence: None)
  Receive Date: 20110510
  Receipt Date: 20110329
  Transmission Date: 20111010
  Serious: Yes (Other)
  Sender: FDA-Public Use
  Company Number: US-BAYER-201039647NA

PATIENT
  Age: 23 Year
  Sex: Female
  Weight: 90.703 kg

DRUGS (2)
  1. YASMIN [Suspect]
     Indication: ORAL CONTRACEPTION
     Route: 048
     Dates: start: 20040101, end: 20080601
  2. YASMIN [Suspect]
     Indication: PREMENSTRUAL SYNDROME

REACTIONS (1)
  - DEEP VEIN THROMBOSIS [None]
